FAERS Safety Report 20946512 (Version 1)
Quarter: 2022Q2

REPORT INFORMATION
  Report Type: Spontaneous
  Country: US (occurrence: None)
  Receive Date: 20220610
  Receipt Date: 20220610
  Transmission Date: 20220721
  Serious: Yes (Death)
  Sender: FDA-Public Use
  Company Number: None

PATIENT
  Sex: Male

DRUGS (2)
  1. ESBRIET [Suspect]
     Active Substance: PIRFENIDONE
     Indication: Pulmonary fibrosis
     Dosage: TAKE 3 TABLETS BY MOUTH 3 TIMES DAILY WITH MEALS.?
     Route: 048
     Dates: start: 20210304, end: 20220608
  2. ESBRIET [Suspect]
     Active Substance: PIRFENIDONE
     Dosage: OTHER FREQUENCY : TID WITH MEALS;?
     Route: 048

REACTIONS (1)
  - Dyspnoea [None]
